FAERS Safety Report 7432773-8 (Version None)
Quarter: 2011Q2

REPORT INFORMATION
  Report Type: 
  Country: None (occurrence: None)
  Receive Date: 20110422
  Receipt Date: 20110412
  Transmission Date: 20111010
  Serious: Yes (Other)
  Sender: FDA-Public Use
  Company Number: B0708328A

PATIENT
  Age: 64 Year
  Sex: Female

DRUGS (1)
  1. MELPHALAN [Suspect]
     Route: 042

REACTIONS (1)
  - HEPATITIS B [None]
